FAERS Safety Report 6320575-5 (Version None)
Quarter: 2009Q3

REPORT INFORMATION
  Report Type: 
  Country: None (occurrence: None)
  Receive Date: 20090822
  Receipt Date: 20081112
  Transmission Date: 20100115
  Serious: No
  Sender: FDA-Public Use
  Company Number: US-ABBOTT-08P-163-0487437-00

PATIENT
  Sex: Female

DRUGS (2)
  1. NIASPAN [Suspect]
     Indication: DRUG USE FOR UNKNOWN INDICATION
     Dates: start: 20060101, end: 20070101
  2. NIASPAN [Suspect]
     Dates: start: 20070101

REACTIONS (5)
  - FEELING HOT [None]
  - FLUSHING [None]
  - LIP SWELLING [None]
  - PARAESTHESIA ORAL [None]
  - SWELLING FACE [None]
